FAERS Safety Report 17770769 (Version 1)
Quarter: 2020Q2

REPORT INFORMATION
  Report Type: Spontaneous
  Country: US (occurrence: US)
  Receive Date: 20200512
  Receipt Date: 20200512
  Transmission Date: 20200714
  Serious: Yes (Hospitalization)
  Sender: FDA-Public Use
  Company Number: None

PATIENT
  Age: 34 Year
  Sex: Male

DRUGS (10)
  1. TRIKAFTA [Suspect]
     Active Substance: ELEXACAFTOR\IVACAFTOR\TEZACAFTOR
     Indication: CYSTIC FIBROSIS
     Route: 048
  2. PULMOZYME [Concomitant]
     Active Substance: DORNASE ALFA
  3. MEPHYTON [Concomitant]
     Active Substance: PHYTONADIONE
  4. AZITHROMYCIN 250MG [Concomitant]
     Active Substance: AZITHROMYCIN ANHYDROUS
  5. COLISTEMETHATE 150MG [Concomitant]
  6. ALBUTEROL 0.083% NEBULIZER SOLUTION [Concomitant]
  7. SYMBICORT [Concomitant]
     Active Substance: BUDESONIDE\FORMOTEROL FUMARATE DIHYDRATE
  8. VITAMIN D 1,000 UNITS [Concomitant]
  9. VITAMIN E 400 UNITS [Concomitant]
  10. TOBRAMYCIN 300MG/5ML [Concomitant]
     Active Substance: TOBRAMYCIN

REACTIONS (3)
  - Therapy interrupted [None]
  - Infective pulmonary exacerbation of cystic fibrosis [None]
  - Infection [None]

NARRATIVE: CASE EVENT DATE: 20200403
